FAERS Safety Report 5314880-9 (Version None)
Quarter: 2007Q2

REPORT INFORMATION
  Report Type: 
  Country: None (occurrence: None)
  Receive Date: 20070426
  Receipt Date: 20070411
  Transmission Date: 20071010
  Serious: No
  Sender: FDA-Public Use
  Company Number: 2007S1001839

PATIENT
  Age: 9 Year
  Sex: Female

DRUGS (6)
  1. CLOZAPINE [Suspect]
     Indication: SCHIZOPHRENIA
     Dosage: SEE IMAGE
     Route: 048
     Dates: start: 20070201, end: 20070301
  2. CLOZAPINE [Suspect]
     Indication: SCHIZOPHRENIA
     Dosage: SEE IMAGE
     Route: 048
     Dates: start: 20070201, end: 20070301
  3. LITHIUM CARBONATE [Concomitant]
  4. LAMOTRIGINE [Concomitant]
  5. ARIPIPRAZOLE [Concomitant]
  6. SERTRALINE [Concomitant]

REACTIONS (7)
  - CYANOSIS [None]
  - FATIGUE [None]
  - MOOD ALTERED [None]
  - NAUSEA [None]
  - NEUTROPHIL COUNT DECREASED [None]
  - SKIN DISCOLOURATION [None]
  - WHITE BLOOD CELL COUNT DECREASED [None]
